FAERS Safety Report 18265413 (Version 1)
Quarter: 2020Q3

REPORT INFORMATION
  Report Type: Other
  Country: US (occurrence: US)
  Receive Date: 20200914
  Receipt Date: 20200914
  Transmission Date: 20201103
  Serious: No
  Sender: FDA-Public Use
  Company Number: US-LEADIANT BIOSCIENCES INC-2020STPI000178

PATIENT
  Sex: Female

DRUGS (3)
  1. MATULANE [Suspect]
     Active Substance: PROCARBAZINE HYDROCHLORIDE
     Indication: HODGKIN^S DISEASE
     Dosage: 100 MG 2 WKS, DAYS 8?21
     Route: 048
     Dates: start: 20200128
  2. IRON [Concomitant]
     Active Substance: IRON
  3. PAXIL [PIROXICAM] [Concomitant]
     Active Substance: PIROXICAM

REACTIONS (2)
  - Nausea [Not Recovered/Not Resolved]
  - Fatigue [Not Recovered/Not Resolved]
